FAERS Safety Report 8170599-0 (Version None)
Quarter: 2012Q1

REPORT INFORMATION
  Report Type: 
  Country: None (occurrence: None)
  Receive Date: 20120228
  Receipt Date: 20120222
  Transmission Date: 20120608
  Serious: Yes (Death)
  Sender: FDA-Public Use
  Company Number: US-AMGEN-USASP2012012249

PATIENT
  Age: 85 Year
  Sex: Male
  Weight: 86.168 kg

DRUGS (1)
  1. PROCRIT [Suspect]
     Indication: IRON DEFICIENCY ANAEMIA
     Dosage: UNK
     Dates: start: 20111001

REACTIONS (1)
  - DEATH [None]
